FAERS Safety Report 10628915 (Version 2)
Quarter: 2014Q4

REPORT INFORMATION
  Report Type: Spontaneous
  Country: US (occurrence: US)
  Receive Date: 20141205
  Receipt Date: 20141205
  Transmission Date: 20150529
  Serious: No
  Sender: FDA-Public Use
  Company Number: US-BRISTOL-MYERS SQUIBB COMPANY-21404835

PATIENT
  Age: 75 Year
  Sex: Female
  Weight: 49.43 kg

DRUGS (1)
  1. KENALOG-40 [Suspect]
     Active Substance: TRIAMCINOLONE ACETONIDE
     Indication: ARTHROPATHY
     Route: 014

REACTIONS (16)
  - Night sweats [Unknown]
  - Hypersensitivity [Unknown]
  - Swollen tongue [Unknown]
  - Fall [Unknown]
  - Drug ineffective [Unknown]
  - Feeling abnormal [Unknown]
  - Headache [Unknown]
  - Electrolyte imbalance [Unknown]
  - Cold sweat [Unknown]
  - Gait disturbance [Unknown]
  - Arthropathy [Unknown]
  - Appetite disorder [Unknown]
  - Local swelling [Unknown]
  - Irritable bowel syndrome [Unknown]
  - Dry mouth [Unknown]
  - Dyspepsia [Unknown]
